FAERS Safety Report 5513199-0 (Version None)
Quarter: 2007Q4

REPORT INFORMATION
  Report Type: 
  Country: None (occurrence: None)
  Receive Date: 20071112
  Receipt Date: 20071022
  Transmission Date: 20080405
  Serious: Yes (Hospitalization)
  Sender: FDA-Public Use
  Company Number: IT-GENENTECH-249569

PATIENT
  Sex: Female

DRUGS (2)
  1. AVASTIN [Suspect]
     Indication: MACULAR DEGENERATION
     Dosage: 1.25 MG, 1/MONTH
     Route: 031
     Dates: start: 20070801
  2. EUTIROX [Concomitant]
     Indication: HYPOTHYROIDISM
     Dates: start: 20030615

REACTIONS (4)
  - APHASIA [None]
  - CONFUSIONAL STATE [None]
  - DIZZINESS [None]
  - TRANSIENT ISCHAEMIC ATTACK [None]
